FAERS Safety Report 18607499 (Version 1)
Quarter: 2020Q4

REPORT INFORMATION
  Report Type: Spontaneous
  Country: US (occurrence: US)
  Receive Date: 20201212
  Receipt Date: 20201212
  Transmission Date: 20210114
  Serious: No
  Sender: FDA-Public Use
  Company Number: US-LUPIN PHARMACEUTICALS INC.-2020-09102

PATIENT
  Sex: Female
  Weight: 65.76 kg

DRUGS (1)
  1. ALBUTEROL SULFATE INHALATION AEROSOL, 90 MCG/ACTUATION [Suspect]
     Active Substance: ALBUTEROL SULFATE
     Indication: ASTHMA
     Dosage: 8 GRAM, PRN (1 PUFF BY MOUTH Q 4 HOURS AS NEEDED)
     Dates: start: 20201005

REACTIONS (4)
  - Device malfunction [Unknown]
  - Extra dose administered [Unknown]
  - Device delivery system issue [Unknown]
  - Drug ineffective [Unknown]
